FAERS Safety Report 20165671 (Version 2)
Quarter: 2021Q4

REPORT INFORMATION
  Report Type: Report from Study
  Country: US (occurrence: US)
  Receive Date: 20211209
  Receipt Date: 20211210
  Transmission Date: 20220303
  Serious: Yes (Death, Hospitalization, Other)
  Sender: FDA-Public Use
  Company Number: US-TAKEDA-US202014205

PATIENT
  Age: 57 Year
  Sex: Female

DRUGS (2)
  1. CUVITRU [Suspect]
     Active Substance: HUMAN IMMUNOGLOBULIN G
     Indication: Primary immunodeficiency syndrome
     Dosage: UNK
     Route: 065
  2. COVID-19 VACCINE NOS [Suspect]
     Active Substance: COVID-19 VACCINE NOS
     Indication: COVID-19 immunisation
     Dosage: UNK
     Route: 065

REACTIONS (9)
  - Colon cancer stage IV [Fatal]
  - Malaise [Unknown]
  - Headache [Unknown]
  - Depression [Unknown]
  - Iron deficiency anaemia [Unknown]
  - Hypersensitivity [Unknown]
  - Blood pressure increased [Unknown]
  - COVID-19 immunisation [Unknown]
  - Pain [Unknown]

NARRATIVE: CASE EVENT DATE: 20210513
